FAERS Safety Report 5075780-5 (Version None)
Quarter: 2006Q3

REPORT INFORMATION
  Report Type: 
  Country: None (occurrence: None)
  Receive Date: 20060809
  Receipt Date: 20051214
  Transmission Date: 20061208
  Serious: No
  Sender: FDA-Public Use
  Company Number: US-AMGEN-KDL161690

PATIENT
  Age: 78 Year
  Sex: Female

DRUGS (3)
  1. PROCRIT [Suspect]
     Indication: ANAEMIA
     Dates: start: 20050907
  2. FOSAMAX [Concomitant]
  3. ARAVA [Concomitant]

REACTIONS (1)
  - HICCUPS [None]
